FAERS Safety Report 9015735 (Version 1)
Quarter: 2013Q1

REPORT INFORMATION
  Report Type: Spontaneous
  Country: GB (occurrence: None)
  Receive Date: 20130103
  Receipt Date: 20130103
  Transmission Date: 20140127
  Serious: Yes (Other)
  Sender: FDA-Public Use
  Company Number: AUR-APL-2012-05563

PATIENT
  Age: 33 Year
  Sex: Female

DRUGS (12)
  1. RISPERIDONE (RISPERIDONE) [Suspect]
     Indication: PSYCHOTIC DISORDER
     Route: 048
     Dates: start: 20121030
  2. ARIPIPRAZOLE (ARIPIPRAZOLE) [Concomitant]
  3. ATENOLOL (ATENOLOL) [Concomitant]
  4. CHLORDIAZEPOXIDE (CHLORDIAZEPOXIDE) (CHLORDIAZEPOXIDE) [Concomitant]
  5. CHLORPROMAZINE (CHLORPROMAZINE) [Concomitant]
  6. FLUPENTHIXOL DECANOATE (FLUPENTIXOL DECANOATE) [Concomitant]
  7. LORAZEPAM (LORAZEPAM) [Concomitant]
  8. PROCYCLIDINE (PROCYCLIDINE) [Concomitant]
  9. QUETIAPINE (QUETIAPINE) (QUETIAPINE) [Concomitant]
  10. THIAMINE (THIAMINE) [Concomitant]
  11. VITAMIN B COMPLEX STRONG (VITAMIN B COMPLEX /05435201/) [Concomitant]
  12. ZOPICLONE (ZOPICLONE) [Concomitant]

REACTIONS (3)
  - Alanine aminotransferase increased [None]
  - Blood alkaline phosphatase increased [None]
  - Blood bilirubin increased [None]
